FAERS Safety Report 6733734-4 (Version None)
Quarter: 2010Q2

REPORT INFORMATION
  Report Type: 
  Country: None (occurrence: None)
  Receive Date: 20100520
  Receipt Date: 20100511
  Transmission Date: 20101027
  Serious: Yes (Other)
  Sender: FDA-Public Use
  Company Number: PHHY2010US20787

PATIENT
  Sex: Female

DRUGS (5)
  1. TEGRETOL [Suspect]
     Dosage: 400 MG, BID
  2. TEGRETOL-XR [Suspect]
     Dosage: 400 MG, BID
     Route: 048
  3. TEGRETOL-XR [Suspect]
     Dosage: 400MG IN THE MORNING AND 600MG IN THE EVENING
     Route: 048
  4. EPITOL [Suspect]
  5. DILANTIN /AUS/ [Concomitant]
     Dosage: 500 MG, DAILY

REACTIONS (8)
  - CONVULSION [None]
  - COORDINATION ABNORMAL [None]
  - DIZZINESS [None]
  - DRUG LEVEL DECREASED [None]
  - FACE INJURY [None]
  - FALL [None]
  - FATIGUE [None]
  - MOUTH INJURY [None]
